FAERS Safety Report 24169411 (Version 2)
Quarter: 2024Q3

REPORT INFORMATION
  Report Type: Spontaneous
  Country: AU (occurrence: AU)
  Receive Date: 20240802
  Receipt Date: 20240819
  Transmission Date: 20241017
  Serious: Yes (Hospitalization, Other)
  Sender: IPSEN
  Company Number: AU-IPSEN Group, Research and Development-2024-14609

PATIENT
  Sex: Male

DRUGS (2)
  1. BYLVAY [Suspect]
     Active Substance: ODEVIXIBAT
     Indication: Alagille syndrome
     Route: 065
  2. BYLVAY [Suspect]
     Active Substance: ODEVIXIBAT
     Indication: Off label use
     Dosage: 4 WEEKS LATER, 100 MCG/KG
     Route: 065

REACTIONS (7)
  - Anal injury [Unknown]
  - Transplant rejection [Unknown]
  - Disease progression [Unknown]
  - Diarrhoea [Unknown]
  - General physical health deterioration [Unknown]
  - Off label use [Unknown]
  - Off label use [Unknown]
